FAERS Safety Report 10480888 (Version 1)
Quarter: 2014Q3

REPORT INFORMATION
  Report Type: Spontaneous
  Country: US (occurrence: US)
  Receive Date: 20140929
  Receipt Date: 20140929
  Transmission Date: 20150326
  Serious: Yes (Other)
  Sender: FDA-Public Use
  Company Number: US-BAYER-2014-138382

PATIENT
  Age: 83 Year
  Sex: Female
  Weight: 48 kg

DRUGS (5)
  1. ALKA-SELTZER GOLD [Suspect]
     Active Substance: ANHYDROUS CITRIC ACID\POTASSIUM BICARBONATE\SODIUM BICARBONATE
     Indication: DYSPEPSIA
     Dosage: 1 DF, PRN
     Route: 048
  2. OMEGA 3 FISH [Concomitant]
     Dosage: 300 MG, UNK
  3. CALCIUM CITRATE [Concomitant]
     Active Substance: CALCIUM CITRATE
     Dosage: 500 MG, UNK
  4. BIOTIN [Concomitant]
     Active Substance: BIOTIN
     Dosage: 1000 MG, UNK
  5. ZYRTEC [CETIRIZINE HYDROCHLORIDE] [Concomitant]

REACTIONS (3)
  - Urine analysis abnormal [Recovered/Resolved]
  - Therapeutic response changed [None]
  - Renal impairment [Recovered/Resolved]
